FAERS Safety Report 12552906 (Version 3)
Quarter: 2018Q1

REPORT INFORMATION
  Report Type: Spontaneous
  Country: JP (occurrence: JP)
  Receive Date: 20160713
  Receipt Date: 20180319
  Transmission Date: 20180508
  Serious: Yes (Death, Hospitalization, Other)
  Sender: FDA-Public Use
  Company Number: JP-ELI_LILLY_AND_COMPANY-JP201607003801

PATIENT
  Age: 78 Year
  Sex: Male

DRUGS (5)
  1. CPT-11 [Suspect]
     Active Substance: IRINOTECAN
     Dosage: 230 MG, 2/W
     Route: 065
     Dates: start: 20160606, end: 20160620
  2. CPT-11 [Suspect]
     Active Substance: IRINOTECAN
     Indication: COLORECTAL CANCER
     Dosage: UNK UNK, UNKNOWN
     Route: 042
     Dates: start: 20111212, end: 20160620
  3. ERBITUX [Suspect]
     Active Substance: CETUXIMAB
     Dosage: 615 MG, UNKNOWN
     Route: 041
     Dates: start: 20160606, end: 20160606
  4. ERBITUX [Suspect]
     Active Substance: CETUXIMAB
     Dosage: 385 MG, WEEKLY (1/W)
     Route: 042
     Dates: start: 20160613, end: 20160620
  5. ERBITUX [Suspect]
     Active Substance: CETUXIMAB
     Indication: COLORECTAL CANCER
     Dosage: UNK, UNKNOWN
     Route: 041
     Dates: start: 20111212

REACTIONS (14)
  - Blood sodium decreased [Unknown]
  - Blood creatinine increased [Unknown]
  - Alanine aminotransferase increased [Unknown]
  - Acute respiratory distress syndrome [Fatal]
  - Febrile neutropenia [Fatal]
  - White blood cell count decreased [Unknown]
  - Haemoglobin decreased [Unknown]
  - Blood magnesium decreased [Unknown]
  - Pneumonitis [Fatal]
  - Blood albumin decreased [Unknown]
  - Platelet count decreased [Unknown]
  - Blood potassium increased [Unknown]
  - Aspartate aminotransferase increased [Unknown]
  - Lung infection [Fatal]

NARRATIVE: CASE EVENT DATE: 2016
